FAERS Safety Report 10296978 (Version 2)
Quarter: 2015Q2

REPORT INFORMATION
  Report Type: Report from Study
  Country: TR (occurrence: TR)
  Receive Date: 20140711
  Receipt Date: 20150409
  Transmission Date: 20150821
  Serious: Yes (Hospitalization, Other)
  Sender: FDA-Public Use
  Company Number: TR-NOVOPROD-415583

PATIENT
  Sex: Male
  Weight: 4 kg

DRUGS (3)
  1. FERAMAT [Concomitant]
     Indication: MINERAL SUPPLEMENTATION
     Dosage: 1X2
     Route: 048
     Dates: start: 201311, end: 20140515
  2. ELEVIT                             /01730301/ [Concomitant]
     Indication: VITAMIN SUPPLEMENTATION
     Dosage: 1X1
     Route: 048
     Dates: start: 201311, end: 20140515
  3. NOVORAPID [Suspect]
     Active Substance: INSULIN ASPART
     Indication: GESTATIONAL DIABETES
     Dosage: 9 U, QD
     Route: 064
     Dates: start: 20140315, end: 20140515

REACTIONS (3)
  - Umbilical cord around neck [Recovered/Resolved]
  - Renal ischaemia [Recovered/Resolved]
  - Foetal exposure during pregnancy [Recovered/Resolved]

NARRATIVE: CASE EVENT DATE: 20140315
